FAERS Safety Report 11390717 (Version 1)
Quarter: 2015Q3

REPORT INFORMATION
  Report Type: Spontaneous
  Country: US (occurrence: US)
  Receive Date: 20150818
  Receipt Date: 20150818
  Transmission Date: 20151125
  Serious: No
  Sender: FDA-Public Use
  Company Number: US-ROCHE-1391851

PATIENT
  Age: 62 Year
  Sex: Male

DRUGS (3)
  1. RIBASPHERE [Suspect]
     Active Substance: RIBAVIRIN
     Indication: CHRONIC HEPATITIS C
     Dosage: DIVIDED DOSES, 600/600?12 WEEK COURSE
     Route: 048
     Dates: start: 20140427
  2. SOVALDI [Suspect]
     Active Substance: SOFOSBUVIR
     Indication: CHRONIC HEPATITIS C
     Dosage: 12 WEEK COURSE
     Route: 048
     Dates: start: 20140427
  3. PEGASYS [Suspect]
     Active Substance: PEGINTERFERON ALFA-2A
     Indication: CHRONIC HEPATITIS C
     Dosage: 12 WEEK COURSE
     Route: 058
     Dates: start: 20140427

REACTIONS (5)
  - Pain [Unknown]
  - Headache [Unknown]
  - Device failure [Unknown]
  - Pollakiuria [Unknown]
  - Accidental exposure to product [Unknown]

NARRATIVE: CASE EVENT DATE: 20140601
